FAERS Safety Report 8903515 (Version 1)
Quarter: 2012Q4

REPORT INFORMATION
  Report Type: 
  Country: IT (occurrence: IT)
  Receive Date: 20121113
  Receipt Date: 20121113
  Transmission Date: 20130627
  Serious: Yes (Death, Other)
  Sender: FDA-Public Use
  Company Number: IT-JNJFOC-20121103881

PATIENT
  Sex: Female

DRUGS (4)
  1. DOXORUBICIN HYDROCHLORIDE [Suspect]
     Indication: MALIGNANT PERITONEAL NEOPLASM
     Dosage: 1mg/min
     Route: 042
  2. DOXORUBICIN HYDROCHLORIDE [Suspect]
     Indication: FALLOPIAN TUBE CANCER
     Dosage: 1mg/min
     Route: 042
  3. DOXORUBICIN HYDROCHLORIDE [Suspect]
     Indication: OVARIAN EPITHELIAL CANCER RECURRENT
     Dosage: 1mg/min
     Route: 042
  4. LOPERAMIDE [Concomitant]
     Indication: ANTIDIARRHOEAL SUPPORTIVE CARE
     Route: 065

REACTIONS (15)
  - Ovarian epithelial cancer recurrent [Fatal]
  - Fallopian tube cancer [Fatal]
  - Malignant neoplasm progression [Fatal]
  - Death [Fatal]
  - Neutropenia [Unknown]
  - Vomiting [Unknown]
  - Mucosal inflammation [Unknown]
  - Stomatitis [Unknown]
  - Palmar-plantar erythrodysaesthesia syndrome [Unknown]
  - Abdominal pain [Unknown]
  - Nausea [Unknown]
  - Diarrhoea [Unknown]
  - Condition aggravated [Unknown]
  - Fatigue [Unknown]
  - Off label use [Unknown]
